FAERS Safety Report 6685751-0 (Version None)
Quarter: 2010Q2

REPORT INFORMATION
  Report Type: 
  Country: None (occurrence: None)
  Receive Date: 20100415
  Receipt Date: 20100415
  Transmission Date: 20101027
  Serious: Yes (Other)
  Sender: FDA-Public Use
  Company Number: None

PATIENT
  Sex: Female
  Weight: 78.9259 kg

DRUGS (6)
  1. PEGASYS [Suspect]
     Indication: HEPATITIS C
     Dosage: 180 MCG ONCE A  WEEK SQ
     Route: 058
     Dates: start: 20100329, end: 20100401
  2. RIBAVIRIN [Suspect]
     Dosage: 1200 MG DAILY PO
     Route: 048
  3. LEXAPRO [Concomitant]
  4. BENICAR [Concomitant]
  5. HYDROCHLOROTHIAZIDE [Concomitant]
  6. METOPROLOL TARTRATE [Concomitant]

REACTIONS (5)
  - ABNORMAL BEHAVIOUR [None]
  - ENERGY INCREASED [None]
  - FEAR [None]
  - HALLUCINATION [None]
  - NIGHTMARE [None]
